FAERS Safety Report 10425452 (Version 1)
Quarter: 2014Q3

REPORT INFORMATION
  Report Type: Spontaneous
  Country: US (occurrence: None)
  Receive Date: 20140722
  Receipt Date: 20140722
  Transmission Date: 20150326
  Serious: No
  Sender: FDA-Public Use
  Company Number: AEGR000394

PATIENT
  Age: 69 Year
  Sex: Male
  Weight: 82.1 kg

DRUGS (6)
  1. FLOMAX (TAMSULOSIN HYDROCHLORIDE) , 0.4 MG [Concomitant]
  2. PROSCAR (FINASTERIDE) , 5 MG [Concomitant]
  3. JUXTAPID [Suspect]
     Active Substance: LOMITAPIDE MESYLATE
     Indication: TYPE IIA HYPERLIPIDAEMIA
     Route: 048
     Dates: start: 201402
  4. NIASPAN (NICOTINIC ACID) , 1000 MG [Concomitant]
  5. NIACIN. [Concomitant]
     Active Substance: NIACIN
  6. WELCHOL [Suspect]
     Active Substance: COLESEVELAM HYDROCHLORIDE

REACTIONS (1)
  - Weight decreased [None]

NARRATIVE: CASE EVENT DATE: 201402
